FAERS Safety Report 7738882-8 (Version None)
Quarter: 2011Q3

REPORT INFORMATION
  Report Type: 
  Country: None (occurrence: None)
  Receive Date: 20110909
  Receipt Date: 20110831
  Transmission Date: 20111222
  Serious: Yes (Hospitalization)
  Sender: FDA-Public Use
  Company Number: US-BIOGENIDEC-2011BI026189

PATIENT
  Age: 48 Year
  Sex: Male

DRUGS (1)
  1. AVONEX [Suspect]
     Indication: MULTIPLE SCLEROSIS
     Route: 030
     Dates: start: 20000428

REACTIONS (6)
  - FATIGUE [None]
  - MULTIPLE SCLEROSIS RELAPSE [None]
  - CARDIAC DISORDER [None]
  - LUNG DISORDER [None]
  - BACK DISORDER [None]
  - MUSCULOSKELETAL STIFFNESS [None]
